FAERS Safety Report 15377550 (Version 2)
Quarter: 2018Q3

REPORT INFORMATION
  Report Type: Spontaneous
  Country: US (occurrence: US)
  Receive Date: 20180913
  Receipt Date: 20180917
  Transmission Date: 20181010
  Serious: No
  Sender: FDA-Public Use
  Company Number: US-PFIZER INC-2018304080

PATIENT
  Age: 65 Year
  Sex: Female
  Weight: 82.55 kg

DRUGS (1)
  1. XELJANZ XR [Suspect]
     Active Substance: TOFACITINIB CITRATE
     Indication: PSORIATIC ARTHROPATHY
     Dosage: 11 MG, 1X/DAY
     Route: 048

REACTIONS (7)
  - Stress [Unknown]
  - Muscle spasms [Not Recovered/Not Resolved]
  - Sciatica [Unknown]
  - Cystitis [Not Recovered/Not Resolved]
  - Rash [Recovering/Resolving]
  - Infection [Unknown]
  - Condition aggravated [Unknown]

NARRATIVE: CASE EVENT DATE: 201808
